FAERS Safety Report 6505462-1 (Version None)
Quarter: 2009Q4

REPORT INFORMATION
  Report Type: 
  Country: None (occurrence: None)
  Receive Date: 20091218
  Receipt Date: 20091207
  Transmission Date: 20100525
  Serious: Yes (Hospitalization)
  Sender: FDA-Public Use
  Company Number: JP-AMGEN-US357298

PATIENT
  Sex: Male
  Weight: 53 kg

DRUGS (13)
  1. ENBREL [Suspect]
     Indication: RHEUMATOID ARTHRITIS
     Dosage: 25 MG X 2/WEEK (LYOPHYLIZED)
     Route: 058
     Dates: start: 20071116, end: 20080821
  2. BUCILLAMINE [Concomitant]
     Indication: RHEUMATOID ARTHRITIS
     Route: 048
     Dates: end: 20081205
  3. PREDNISOLONE [Concomitant]
     Indication: RHEUMATOID ARTHRITIS
     Route: 048
     Dates: end: 20090311
  4. ASPARA-CA [Concomitant]
     Indication: OSTEOPOROSIS
     Route: 048
     Dates: end: 20090310
  5. HYPEN [Concomitant]
     Indication: RHEUMATOID ARTHRITIS
     Route: 048
     Dates: end: 20090310
  6. ALESION [Concomitant]
     Indication: URTICARIA
     Route: 048
     Dates: start: 20081112, end: 20081119
  7. GASTER [Concomitant]
     Indication: PROPHYLAXIS
     Route: 048
  8. AMOBAN [Concomitant]
     Indication: INSOMNIA
     Route: 048
  9. ACTONEL [Concomitant]
     Indication: OSTEOPOROSIS
     Route: 048
     Dates: end: 20090310
  10. KLARICID [Concomitant]
     Indication: BRONCHITIS
     Route: 048
     Dates: end: 20090310
  11. PROGRAF [Concomitant]
     Indication: RHEUMATOID ARTHRITIS
     Route: 048
     Dates: start: 20081121, end: 20090310
  12. METHOTREXATE [Concomitant]
     Indication: RHEUMATOID ARTHRITIS
     Route: 048
     Dates: start: 20030110, end: 20090310
  13. FOLIAMIN [Concomitant]
     Indication: PROPHYLAXIS
     Route: 048
     Dates: start: 20030110

REACTIONS (1)
  - ANAPHYLACTIC SHOCK [None]
